FAERS Safety Report 9683940 (Version 2)
Quarter: 2013Q4

REPORT INFORMATION
  Report Type: Spontaneous
  Country: GB (occurrence: GB)
  Receive Date: 20131112
  Receipt Date: 20131112
  Transmission Date: 20140711
  Serious: Yes (Disabling)
  Sender: FDA-Public Use
  Company Number: GB-WATSON-2013-12529

PATIENT
  Age: 63 Year
  Sex: Male
  Weight: 59 kg

DRUGS (5)
  1. OMEPRAZOLE (UNKNOWN) [Suspect]
     Indication: PRODUCT USED FOR UNKNOWN INDICATION
     Dosage: 40 MG, DAILY
     Route: 065
  2. VFEND [Interacting]
     Indication: CEREBRAL ASPERGILLOSIS
     Dosage: 240 MG, UNK
     Route: 042
     Dates: start: 20130308
  3. VFEND [Interacting]
     Dosage: 6 MG/KG, UNK 2 DOSES
     Route: 042
     Dates: start: 20130227
  4. VFEND [Interacting]
     Dosage: 6 MG/L BID
     Route: 042
  5. VFEND [Interacting]
     Dosage: 4 MG/KG, UNK
     Route: 042

REACTIONS (3)
  - Toxicity to various agents [Not Recovered/Not Resolved]
  - Drug level increased [Not Recovered/Not Resolved]
  - Drug interaction [Unknown]
